FAERS Safety Report 17083131 (Version 3)
Quarter: 2019Q4

REPORT INFORMATION
  Report Type: Spontaneous
  Country: JP (occurrence: JP)
  Receive Date: 20191127
  Receipt Date: 20191217
  Transmission Date: 20200122
  Serious: Yes (Other)
  Sender: FDA-Public Use
  Company Number: JP-OTSUKA-2019_039571

PATIENT
  Age: 9 Decade
  Sex: Female

DRUGS (4)
  1. QUETIAPINE. [Suspect]
     Active Substance: QUETIAPINE
     Dosage: 75 MG, DAILY DOSE
     Route: 048
     Dates: start: 20191112
  2. REXULTI [Suspect]
     Active Substance: BREXPIPRAZOLE
     Indication: SCHIZOPHRENIA
     Dosage: 2 MG, DAILY DOSE
     Route: 048
     Dates: start: 20191014
  3. QUETIAPINE. [Suspect]
     Active Substance: QUETIAPINE
     Indication: PRODUCT USED FOR UNKNOWN INDICATION
     Dosage: 100 MG, DAILY DOSE
     Route: 048
     Dates: start: 20191107, end: 20191111
  4. QUETIAPINE. [Suspect]
     Active Substance: QUETIAPINE
     Dosage: 75 MG, DAILY DOSE
     Route: 048
     Dates: start: 20191014, end: 20191106

REACTIONS (1)
  - Talipes [Recovering/Resolving]

NARRATIVE: CASE EVENT DATE: 20191111
